FAERS Safety Report 13491538 (Version 1)
Quarter: 2017Q2

REPORT INFORMATION
  Report Type: Spontaneous
  Country: TW (occurrence: TW)
  Receive Date: 20170427
  Receipt Date: 20170427
  Transmission Date: 20170830
  Serious: Yes (Death, Other)
  Sender: FDA-Public Use
  Company Number: TW-ROCHE-1923029

PATIENT
  Age: 73 Year
  Sex: Female
  Weight: 47 kg

DRUGS (10)
  1. ETORICOXIB [Concomitant]
     Active Substance: ETORICOXIB
     Indication: RHEUMATOID ARTHRITIS
     Route: 048
     Dates: start: 20161118
  2. MABTHERA [Suspect]
     Active Substance: RITUXIMAB
     Indication: RHEUMATOID ARTHRITIS
     Route: 041
     Dates: start: 20160831, end: 20160921
  3. HCTZ [Concomitant]
     Active Substance: HYDROCHLOROTHIAZIDE
     Indication: HYPERTENSION
     Route: 048
  4. HYDROXYCHLOROQUINE [Concomitant]
     Active Substance: HYDROXYCHLOROQUINE
     Indication: RHEUMATOID ARTHRITIS
     Route: 048
     Dates: start: 20140711
  5. GLUCOPHAGE [Concomitant]
     Active Substance: METFORMIN HYDROCHLORIDE
     Indication: DIABETES MELLITUS
     Route: 046
     Dates: start: 20161118
  6. CALCIUM ACETATE. [Concomitant]
     Active Substance: CALCIUM ACETATE
     Indication: PROPHYLAXIS
     Route: 048
     Dates: start: 20140321
  7. AMLODIPINE [Concomitant]
     Active Substance: AMLODIPINE BESYLATE
  8. OLMESARTAN [Concomitant]
     Active Substance: OLMESARTAN
  9. BISOPROLOL [Concomitant]
     Active Substance: BISOPROLOL
     Indication: HYPERTENSION
     Route: 048
  10. PREDNISOLONE. [Concomitant]
     Active Substance: PREDNISOLONE
     Indication: RHEUMATOID ARTHRITIS
     Route: 048
     Dates: start: 20160518

REACTIONS (14)
  - Intraventricular haemorrhage [Unknown]
  - Subarachnoid haemorrhage [Unknown]
  - Brain stem infarction [Fatal]
  - Pathological fracture [Unknown]
  - Brain oedema [Unknown]
  - Acute respiratory distress syndrome [Unknown]
  - Brain compression [Unknown]
  - Spinal cord compression [Unknown]
  - Subdural haemorrhage [Unknown]
  - Cerebellar infarction [Fatal]
  - Transfusion-related acute lung injury [Unknown]
  - Acute kidney injury [Unknown]
  - Lung infiltration [Unknown]
  - Hydrocephalus [Unknown]

NARRATIVE: CASE EVENT DATE: 2017
